FAERS Safety Report 20957837 (Version 1)
Quarter: 2022Q2

REPORT INFORMATION
  Report Type: Spontaneous
  Country: US (occurrence: US)
  Receive Date: 20220614
  Receipt Date: 20220614
  Transmission Date: 20220721
  Serious: No
  Sender: FDA-Public Use
  Company Number: US-HORIZON THERAPEUTICS-HZN-2022-003327

PATIENT
  Sex: Male

DRUGS (2)
  1. RAYOS [Suspect]
     Active Substance: PREDNISONE
     Indication: Osteoarthritis
     Dosage: 1 MG, T 1T PO QD
     Route: 048
  2. DUEXIS [Suspect]
     Active Substance: FAMOTIDINE\IBUPROFEN
     Indication: Osteoarthritis
     Dosage: 800/26.6MG , T 1T PO Q8H PP
     Route: 048

REACTIONS (3)
  - Illness [Unknown]
  - Vomiting [Unknown]
  - Depression [Unknown]
